FAERS Safety Report 5606176-2 (Version None)
Quarter: 2008Q1

REPORT INFORMATION
  Report Type: 
  Country: None (occurrence: None)
  Receive Date: 20080129
  Receipt Date: 20070109
  Transmission Date: 20080703
  Serious: No
  Sender: FDA-Public Use
  Company Number: A0635040A

PATIENT
  Sex: Female

DRUGS (1)
  1. WELLBUTRIN [Suspect]
     Indication: DRUG USE FOR UNKNOWN INDICATION
     Dosage: 3TAB PER DAY
     Route: 065

REACTIONS (3)
  - DRUG INEFFECTIVE [None]
  - PERSONALITY CHANGE [None]
  - WEIGHT DECREASED [None]
